FAERS Safety Report 18016849 (Version 2)
Quarter: 2020Q3

REPORT INFORMATION
  Report Type: Report from Study
  Country: US (occurrence: US)
  Receive Date: 20200713
  Receipt Date: 20200714
  Transmission Date: 20201103
  Serious: No
  Sender: FDA-Public Use
  Company Number: US-VANDA PHARMACEUTICALS, INC-2020TASUS003979

PATIENT
  Age: 64 Year
  Sex: Male
  Weight: 106.58 kg

DRUGS (2)
  1. HETLIOZ [Suspect]
     Active Substance: TASIMELTEON
     Indication: NON-24-HOUR SLEEP-WAKE DISORDER
     Dosage: 20 MG, QD, 1H BEFORE BEDTIME
     Route: 048
     Dates: start: 20200324, end: 202005
  2. HETLIOZ [Suspect]
     Active Substance: TASIMELTEON
     Dosage: 20 MG, QD, 1H BEFORE BEDTIME
     Route: 048
     Dates: start: 20200324, end: 202005

REACTIONS (5)
  - Renal pain [Recovered/Resolved]
  - Somnolence [Recovered/Resolved]
  - Post-traumatic stress disorder [Unknown]
  - Nightmare [Recovered/Resolved]
  - Insomnia [Recovered/Resolved]

NARRATIVE: CASE EVENT DATE: 20200411
